FAERS Safety Report 8579700-8 (Version None)
Quarter: 2012Q3

REPORT INFORMATION
  Report Type: 
  Country: None (occurrence: None)
  Receive Date: 20120808
  Receipt Date: 20120727
  Transmission Date: 20120928
  Serious: No
  Sender: FDA-Public Use
  Company Number: US-ASTRAZENECA-2012SE53548

PATIENT
  Age: 55 Year
  Sex: Female
  Weight: 56.7 kg

DRUGS (5)
  1. ASPIRIN [Concomitant]
  2. LOPRESSOR [Concomitant]
  3. VITAMIN D [Concomitant]
  4. NEXIUM [Suspect]
     Indication: GASTROOESOPHAGEAL REFLUX DISEASE
     Route: 048
  5. MEDICATION [Concomitant]
     Indication: CARDIAC DISORDER

REACTIONS (5)
  - OROPHARYNGEAL DISCOMFORT [None]
  - DISCOMFORT [None]
  - DYSGEUSIA [None]
  - CHEST DISCOMFORT [None]
  - SENSATION OF FOREIGN BODY [None]
